FAERS Safety Report 5806157-X (Version None)
Quarter: 2008Q3

REPORT INFORMATION
  Report Type: 
  Country: None (occurrence: None)
  Receive Date: 20080710
  Receipt Date: 20080630
  Transmission Date: 20090109
  Serious: Yes (Life-Threatening)
  Sender: FDA-Public Use
  Company Number: FR-AVENTIS-200812496FR

PATIENT
  Age: 49 Year
  Sex: Male

DRUGS (6)
  1. CORTANCYL [Suspect]
     Route: 048
     Dates: start: 20040801, end: 20060524
  2. PROFENID [Suspect]
     Route: 048
     Dates: start: 20040801, end: 20060524
  3. ARAVA [Suspect]
     Route: 048
     Dates: start: 20040801, end: 20060524
  4. REMICADE [Suspect]
     Route: 042
     Dates: start: 20040801, end: 20060524
  5. INIPOMP                            /01263201/ [Concomitant]
     Indication: DRUG USE FOR UNKNOWN INDICATION
     Route: 048
  6. COZAAR [Concomitant]
     Indication: DRUG USE FOR UNKNOWN INDICATION
     Route: 048

REACTIONS (2)
  - DIVERTICULAR PERFORATION [None]
  - SEPTIC SHOCK [None]
